FAERS Safety Report 12779992 (Version 1)
Quarter: 2016Q3

REPORT INFORMATION
  Report Type: Spontaneous
  Country: US (occurrence: US)
  Receive Date: 20160926
  Receipt Date: 20160926
  Transmission Date: 20161109
  Serious: Yes (Life-Threatening, Disabling)
  Sender: FDA-Public Use
  Company Number: None

PATIENT
  Age: 21 Year
  Sex: Female
  Weight: 54.48 kg

DRUGS (6)
  1. MULTIVITAMIN [Concomitant]
     Active Substance: VITAMINS
  2. D3 DROPS [Concomitant]
  3. LO OGESTROL [Concomitant]
  4. MIRENA [Suspect]
     Active Substance: LEVONORGESTREL
  5. DHA [Concomitant]
     Active Substance: DIETARY SUPPLEMENT
  6. TUMERIC [Concomitant]
     Active Substance: TURMERIC

REACTIONS (5)
  - Weight increased [None]
  - Acne cystic [None]
  - Mood swings [None]
  - Feeling abnormal [None]
  - Depression [None]

NARRATIVE: CASE EVENT DATE: 20131024
